FAERS Safety Report 6414238-5 (Version None)
Quarter: 2009Q4

REPORT INFORMATION
  Report Type: 
  Country: None (occurrence: None)
  Receive Date: 20091026
  Receipt Date: 20091014
  Transmission Date: 20100525
  Serious: Yes (Hospitalization)
  Sender: FDA-Public Use
  Company Number: CA-SANOFI-SYNTHELABO-A01200910612

PATIENT
  Age: 69 Year
  Sex: Male

DRUGS (13)
  1. ALPRAZOLAM [Concomitant]
     Indication: DRUG USE FOR UNKNOWN INDICATION
     Route: 065
     Dates: end: 20090921
  2. ATENOLOL [Concomitant]
     Indication: DRUG USE FOR UNKNOWN INDICATION
     Dosage: 75 MG
     Route: 065
     Dates: end: 20090921
  3. LIPITOR [Concomitant]
     Indication: DRUG USE FOR UNKNOWN INDICATION
     Dosage: 20 MG
     Route: 065
  4. ASPIRIN [Concomitant]
     Indication: DRUG USE FOR UNKNOWN INDICATION
     Dosage: 80 MG
     Route: 065
  5. AMLODIPINE [Concomitant]
     Indication: DRUG USE FOR UNKNOWN INDICATION
     Dosage: 10 MG
     Route: 065
     Dates: end: 20090501
  6. AMLODIPINE [Concomitant]
     Dosage: 5 MG
     Route: 065
     Dates: start: 20090601, end: 20090921
  7. RAMIPRIL [Concomitant]
     Indication: DRUG USE FOR UNKNOWN INDICATION
     Dosage: 10 MG
     Route: 065
     Dates: end: 20090501
  8. RAMIPRIL [Concomitant]
     Dosage: 5 MG
     Route: 065
     Dates: start: 20090601, end: 20090701
  9. RAMIPRIL [Concomitant]
     Dosage: 2.5 MG
     Route: 065
     Dates: start: 20090801
  10. NITROLINGUAL [Concomitant]
     Indication: DRUG USE FOR UNKNOWN INDICATION
     Dosage: UNK
     Route: 065
  11. XATRAL [Suspect]
     Indication: BENIGN PROSTATIC HYPERPLASIA
     Route: 048
     Dates: start: 20060822, end: 20090921
  12. IMDUR [Concomitant]
     Indication: DRUG USE FOR UNKNOWN INDICATION
     Dosage: 180 MG
     Route: 065
     Dates: end: 20090701
  13. IMDUR [Concomitant]
     Dosage: 120 MG
     Route: 065
     Dates: start: 20090801, end: 20090101

REACTIONS (1)
  - MYOCARDIAL INFARCTION [None]
